FAERS Safety Report 15666112 (Version 2)
Quarter: 2018Q4

REPORT INFORMATION
  Report Type: Spontaneous
  Country: US (occurrence: US)
  Receive Date: 20181128
  Receipt Date: 20181203
  Transmission Date: 20190205
  Serious: No
  Sender: FDA-Public Use
  Company Number: US-MERZ NORTH AMERICA, INC.-18MRZ-00602

PATIENT
  Sex: Female

DRUGS (1)
  1. XEOMIN [Suspect]
     Active Substance: INCOBOTULINUMTOXINA
     Indication: PRODUCT USED FOR UNKNOWN INDICATION
     Dates: start: 20181115, end: 20181115

REACTIONS (9)
  - Migraine [Unknown]
  - Ill-defined disorder [Unknown]
  - Injection site bruising [Unknown]
  - Dysarthria [Recovering/Resolving]
  - Bedridden [Unknown]
  - Cognitive disorder [Unknown]
  - Injection site haemorrhage [Unknown]
  - Dizziness [Unknown]
  - Limb discomfort [Unknown]
